FAERS Safety Report 25861303 (Version 1)
Quarter: 2025Q3

REPORT INFORMATION
  Report Type: Spontaneous
  Country: US (occurrence: US)
  Receive Date: 20250929
  Receipt Date: 20250929
  Transmission Date: 20251020
  Serious: Yes (Hospitalization)
  Sender: PRINSTON PHARMACEUTICAL
  Company Number: US-PRINSTON PHARMACEUTICAL INC.-2025PRN00314

PATIENT
  Age: 22 Year
  Sex: Female

DRUGS (5)
  1. LISINOPRIL [Suspect]
     Active Substance: LISINOPRIL
     Route: 048
  2. TADALAFIL [Suspect]
     Active Substance: TADALAFIL
     Route: 048
  3. FELODIPINE [Suspect]
     Active Substance: FELODIPINE
     Route: 048
  4. FLUOXETINE [Suspect]
     Active Substance: FLUOXETINE HYDROCHLORIDE
     Route: 048
  5. ALCOHOL [Suspect]
     Active Substance: ALCOHOL
     Route: 048

REACTIONS (2)
  - Distributive shock [Recovered/Resolved]
  - Intentional overdose [Unknown]
